FAERS Safety Report 9059233 (Version 3)
Quarter: 2013Q1

REPORT INFORMATION
  Report Type: Spontaneous
  Country: US (occurrence: US)
  Receive Date: 20130211
  Receipt Date: 20130320
  Transmission Date: 20140127
  Serious: Yes (Death)
  Sender: FDA-Public Use
  Company Number: US-FRI-1000042519

PATIENT
  Age: 7 Year
  Sex: Female

DRUGS (4)
  1. CELEXA [Suspect]
     Indication: AGITATION
     Dosage: 5 MG
     Dates: start: 20100506, end: 201005
  2. CELEXA [Suspect]
     Dosage: 40 MG
     Dates: start: 201005, end: 201005
  3. CLONAZEPAM [Concomitant]
     Dosage: 5 MG
  4. CLONAZEPAM [Concomitant]
     Dosage: 40 MG
     Dates: end: 201005

REACTIONS (3)
  - Drowning [Fatal]
  - Somnolence [Fatal]
  - Off label use [Recovered/Resolved]
